FAERS Safety Report 22178553 (Version 1)
Quarter: 2023Q2

REPORT INFORMATION
  Report Type: Spontaneous
  Country: RO (occurrence: RO)
  Receive Date: 20230405
  Receipt Date: 20230405
  Transmission Date: 20230721
  Serious: Yes (Hospitalization)
  Sender: FDA-Public Use
  Company Number: RO-BoehringerIngelheim-2023-BI-229462

PATIENT
  Age: 78 Year
  Sex: Female

DRUGS (1)
  1. MICARDIS [Suspect]
     Active Substance: TELMISARTAN
     Indication: Product used for unknown indication

REACTIONS (2)
  - Dyspnoea exertional [Recovered/Resolved]
  - Palpitations [Recovered/Resolved]
